FAERS Safety Report 5815996-0 (Version None)
Quarter: 2008Q3

REPORT INFORMATION
  Report Type: 
  Country: None (occurrence: None)
  Receive Date: 20080721
  Receipt Date: 20080716
  Transmission Date: 20090109
  Serious: Yes (Death, Other)
  Sender: FDA-Public Use
  Company Number: PHHY2008JP14402

PATIENT
  Age: 71 Year
  Sex: Male

DRUGS (2)
  1. ZOMETA [Suspect]
     Dosage: UNK
     Route: 042
     Dates: start: 20040601
  2. AREDIA [Suspect]
     Dosage: UNK
     Route: 042
     Dates: start: 20040601

REACTIONS (2)
  - MALIGNANT NEOPLASM PROGRESSION [None]
  - OSTEONECROSIS [None]
